FAERS Safety Report 6920226-2 (Version None)
Quarter: 2010Q3

REPORT INFORMATION
  Report Type: 
  Country: None (occurrence: None)
  Receive Date: 20100809
  Receipt Date: 20100728
  Transmission Date: 20110219
  Serious: Yes (Hospitalization)
  Sender: FDA-Public Use
  Company Number: 016497

PATIENT
  Sex: Female
  Weight: 35.2 kg

DRUGS (4)
  1. KEPPRA [Suspect]
     Indication: CONVULSION
     Dosage: (200 MG QD, ROUTE - G TUBE, TABLET CRUSHED AND GIVEN)
  2. LACOSAMIDE [Suspect]
     Indication: CONVULSION
     Dosage: (50 ML BID, ROUTE - G-TUBE)
     Dates: start: 20100515, end: 20100728
  3. DEPAKOTE [Concomitant]
  4. TOPAMAX [Concomitant]

REACTIONS (4)
  - CONVULSION [None]
  - RASH GENERALISED [None]
  - VOMITING [None]
  - WRONG TECHNIQUE IN DRUG USAGE PROCESS [None]
